FAERS Safety Report 4793404-9 (Version None)
Quarter: 2005Q4

REPORT INFORMATION
  Report Type: 
  Country: None (occurrence: None)
  Receive Date: 20051005
  Receipt Date: 20050927
  Transmission Date: 20060501
  Serious: Yes (Hospitalization, Other)
  Sender: FDA-Public Use
  Company Number: 2005085407

PATIENT
  Age: 83 Year
  Sex: Female
  Weight: 72.5755 kg

DRUGS (4)
  1. BEXTRA [Suspect]
     Indication: ARTHRITIS
     Dosage: 20 MG (20 MG, 1 IN 1 D) ORAL
     Route: 048
     Dates: start: 20030211
  2. DRUG, UNSPECIFIED [Concomitant]
  3. PREDNISONE [Concomitant]
  4. OXYBUTYNIN [Concomitant]

REACTIONS (2)
  - ERYTHEMA MULTIFORME [None]
  - RASH PRURITIC [None]
